FAERS Safety Report 4650772-6 (Version None)
Quarter: 2005Q2

REPORT INFORMATION
  Report Type: 
  Country: None (occurrence: None)
  Receive Date: 20050503
  Receipt Date: 20050426
  Transmission Date: 20051028
  Serious: Yes (Hospitalization)
  Sender: FDA-Public Use
  Company Number: US-BRISTOL-MYERS SQUIBB COMPANY-12948477

PATIENT
  Age: 66 Year
  Sex: Male
  Weight: 87 kg

DRUGS (15)
  1. CETUXIMAB [Suspect]
     Indication: NON-SMALL CELL LUNG CANCER
     Dosage: INITIATED ON 29-DEC-2004.
     Route: 042
     Dates: start: 20050419, end: 20050419
  2. CARBOPLATIN [Suspect]
     Indication: NON-SMALL CELL LUNG CANCER
     Dosage: INITIATED ON 29-DEC-2004. AUC 6
     Route: 042
     Dates: start: 20050419, end: 20050419
  3. DOCETAXEL [Suspect]
     Indication: NON-SMALL CELL LUNG CANCER
     Dosage: INITIATED ON 29-DEC-2004.
     Route: 042
     Dates: start: 20050419, end: 20050419
  4. STARLIX [Concomitant]
     Indication: DIABETES MELLITUS
     Route: 048
     Dates: start: 19990101
  5. PRAVACHOL [Concomitant]
     Indication: BLOOD CHOLESTEROL
     Route: 048
     Dates: start: 19990101
  6. PREVACID [Concomitant]
     Indication: GASTROOESOPHAGEAL REFLUX DISEASE
     Route: 048
     Dates: start: 19990101
  7. LOTREL [Concomitant]
     Indication: HYPERTENSION
     Route: 048
     Dates: start: 19990101
  8. ASPIRIN [Concomitant]
     Indication: TRANSIENT ISCHAEMIC ATTACK
     Route: 048
     Dates: start: 20050114
  9. ATIVAN [Concomitant]
     Indication: INSOMNIA
     Route: 048
     Dates: start: 20050119
  10. LORTAB [Concomitant]
     Indication: PAIN
     Route: 048
     Dates: start: 20050125
  11. COUMADIN [Concomitant]
     Indication: PULMONARY EMBOLISM
     Route: 048
     Dates: start: 20050305
  12. RESTORIL [Concomitant]
     Indication: INSOMNIA
     Route: 048
     Dates: start: 20050125
  13. MIRALAX [Concomitant]
     Indication: CONSTIPATION
     Route: 048
     Dates: start: 20050209
  14. DEXAMETHASONE [Concomitant]
     Indication: PROPHYLAXIS
     Route: 048
     Dates: start: 20050228
  15. COMBIVENT [Concomitant]
     Indication: DYSPNOEA
     Dates: start: 20050418

REACTIONS (2)
  - COORDINATION ABNORMAL [None]
  - NEUTROPENIA [None]
